FAERS Safety Report 4618066-2 (Version None)
Quarter: 2005Q1

REPORT INFORMATION
  Report Type: 
  Country: None (occurrence: None)
  Receive Date: 20050322
  Receipt Date: 20050218
  Transmission Date: 20050727
  Serious: Yes (Hospitalization)
  Sender: FDA-Public Use
  Company Number: 2005035583

PATIENT
  Age: 78 Year
  Sex: Female

DRUGS (8)
  1. ZOLOFT [Suspect]
     Indication: DEPRESSION
     Dosage: 100 MG, ORAL
     Route: 048
  2. VENLAFAXINE HCL [Suspect]
     Indication: ILL-DEFINED DISORDER
     Dosage: 75 MG, ORAL
     Route: 048
  3. ZOPICLONE (ZOPICLONE) [Concomitant]
  4. GLIMEPIRIDE [Concomitant]
  5. BELOC-ZOC COMP        (HYDROCHLOROTHIAZIDE, METOPROLOL SUCCINATE) [Concomitant]
  6. PROPAFENONE HCL [Concomitant]
  7. METFORMIN HCL [Concomitant]
  8. LORAZEPAM [Concomitant]

REACTIONS (1)
  - DIARRHOEA [None]
